FAERS Safety Report 15310337 (Version 1)
Quarter: 2018Q3

REPORT INFORMATION
  Report Type: Spontaneous
  Country: FR (occurrence: FR)
  Receive Date: 20180823
  Receipt Date: 20180823
  Transmission Date: 20181010
  Serious: Yes (Hospitalization, Other)
  Sender: FDA-Public Use
  Company Number: FR-AUROBINDO-AUR-APL-2018-042968

PATIENT
  Age: 44 Year
  Sex: Female

DRUGS (4)
  1. IXPRIM [Suspect]
     Active Substance: ACETAMINOPHEN\TRAMADOL HYDROCHLORIDE
     Indication: NEURALGIA
     Dosage: UNK
     Route: 048
     Dates: start: 20180525, end: 20180703
  2. PARACETAMOL [Suspect]
     Active Substance: ACETAMINOPHEN
     Indication: NEURALGIA
     Dosage: UNK
     Route: 048
     Dates: start: 20180525, end: 20180703
  3. CODEINE [Suspect]
     Active Substance: CODEINE
     Indication: NEURALGIA
     Dosage: UNK
     Route: 048
     Dates: start: 20180525, end: 20180703
  4. MYCOSTER                           /00619301/ [Concomitant]
     Active Substance: CICLOPIROX\CICLOPIROX OLAMINE
     Indication: PRODUCT USED FOR UNKNOWN INDICATION
     Dosage: UNK
     Route: 003

REACTIONS (1)
  - Meningitis aseptic [Recovered/Resolved]

NARRATIVE: CASE EVENT DATE: 201807
